FAERS Safety Report 24432085 (Version 1)
Quarter: 2024Q4

REPORT INFORMATION
  Report Type: Spontaneous
  Country: IT (occurrence: IT)
  Receive Date: 20241014
  Receipt Date: 20241014
  Transmission Date: 20250115
  Serious: Yes (Hospitalization, Other)
  Sender: SANOFI AVENTIS
  Company Number: IT-SA-2024SA291569

PATIENT
  Age: 59 Year
  Sex: Male

DRUGS (6)
  1. ISATUXIMAB [Suspect]
     Active Substance: ISATUXIMAB
     Indication: Plasma cell myeloma refractory
     Dosage: UNK
     Route: 041
     Dates: start: 202307
  2. ISATUXIMAB [Suspect]
     Active Substance: ISATUXIMAB
     Indication: Plasmacytoma
  3. DEXAMETHASONE [Suspect]
     Active Substance: DEXAMETHASONE
     Indication: Plasmacytoma
     Dosage: UNK
     Route: 041
     Dates: start: 202307
  4. DEXAMETHASONE [Suspect]
     Active Substance: DEXAMETHASONE
     Indication: Plasma cell myeloma refractory
  5. CARFILZOMIB [Suspect]
     Active Substance: CARFILZOMIB
     Indication: Plasma cell myeloma refractory
     Dosage: UNK
     Route: 041
     Dates: start: 202307
  6. CARFILZOMIB [Suspect]
     Active Substance: CARFILZOMIB
     Indication: Plasmacytoma

REACTIONS (2)
  - Pancytopenia [Unknown]
  - Blood lactate dehydrogenase abnormal [Unknown]

NARRATIVE: CASE EVENT DATE: 20230101
